FAERS Safety Report 8333906-1 (Version None)
Quarter: 2012Q2

REPORT INFORMATION
  Report Type: 
  Country: None (occurrence: None)
  Receive Date: 20120503
  Receipt Date: 20120426
  Transmission Date: 20120825
  Serious: Yes (Other)
  Sender: FDA-Public Use
  Company Number: SE-PFIZER INC-2012104214

PATIENT
  Age: 4 Year
  Sex: Male

DRUGS (1)
  1. REFACTO [Suspect]
     Indication: FACTOR VIII DEFICIENCY
     Dosage: STRENGTH 2000IE/IU DAILY

REACTIONS (1)
  - ANTI FACTOR VIII ANTIBODY POSITIVE [None]
